FAERS Safety Report 11198525 (Version 10)
Quarter: 2015Q4

REPORT INFORMATION
  Report Type: Report from Study
  Country: FR (occurrence: FR)
  Receive Date: 20150618
  Receipt Date: 20151125
  Transmission Date: 20160304
  Serious: Yes (Other)
  Sender: FDA-Public Use
  Company Number: FR-JNJFOC-20150518264

PATIENT
  Age: 30 Year
  Sex: Male
  Weight: 70 kg

DRUGS (7)
  1. TMC207 [Suspect]
     Active Substance: BEDAQUILINE
     Indication: TUBERCULOSIS
     Dosage: AT LEAST 48 HOURS BETWEEN DOSES AND NOT EXCEEDING 600 MG IN A 7 DAY PERIOD), FOR 22 WEEKS
     Route: 048
  2. ZYVOXID [Concomitant]
     Active Substance: LINEZOLID
     Indication: TUBERCULOSIS
     Route: 065
     Dates: start: 20150116
  3. ETHAMBUTOL [Concomitant]
     Active Substance: ETHAMBUTOL HYDROCHLORIDE
     Indication: TUBERCULOSIS
     Route: 065
  4. PARACETAMOL [Concomitant]
     Active Substance: ACETAMINOPHEN
     Route: 065
  5. ETHAMBUTOL [Concomitant]
     Active Substance: ETHAMBUTOL HYDROCHLORIDE
     Indication: TUBERCULOSIS
     Route: 065
     Dates: start: 20150116
  6. TMC207 [Suspect]
     Active Substance: BEDAQUILINE
     Indication: TUBERCULOSIS
     Dosage: FOR 2 WEEKS (14 DAYS)
     Route: 048
     Dates: start: 20150430
  7. BI-PROFENID [Concomitant]
     Active Substance: KETOPROFEN
     Route: 065

REACTIONS (5)
  - Vertigo [Unknown]
  - Arrhythmia [Recovering/Resolving]
  - Malaise [Recovering/Resolving]
  - Tuberculosis [Unknown]
  - Inappropriate schedule of drug administration [Unknown]

NARRATIVE: CASE EVENT DATE: 20150511
